FAERS Safety Report 8943834 (Version 18)
Quarter: 2019Q3

REPORT INFORMATION
  Report Type: Report from Study
  Country: CA (occurrence: CA)
  Receive Date: 20121204
  Receipt Date: 20190717
  Transmission Date: 20191005
  Serious: Yes (Hospitalization, Other)
  Sender: FDA-Public Use
  Company Number: PHHY2012CA110141

PATIENT
  Age: 67 Year
  Sex: Female

DRUGS (1)
  1. SANDOSTATIN LAR DEPOT [Suspect]
     Active Substance: OCTREOTIDE ACETATE
     Indication: BRONCHIAL CARCINOMA
     Dosage: 30 MG, Q3W
     Route: 030
     Dates: start: 20060720

REACTIONS (10)
  - Rhinorrhoea [Unknown]
  - Blood pressure systolic increased [Unknown]
  - Blood pressure decreased [Unknown]
  - Injection site haemorrhage [Recovered/Resolved]
  - Cataract [Unknown]
  - Product use issue [Unknown]
  - Cough [Unknown]
  - Fall [Unknown]
  - Blood pressure increased [Unknown]
  - Wrong technique in product usage process [Unknown]

NARRATIVE: CASE EVENT DATE: 20060720
